FAERS Safety Report 9192593 (Version 1)
Quarter: 2013Q1

REPORT INFORMATION
  Report Type: Spontaneous
  Country: US (occurrence: None)
  Receive Date: 20120703
  Receipt Date: 20120703
  Transmission Date: 20140127
  Serious: No
  Sender: FDA-Public Use
  Company Number: PHEH2012US009306

PATIENT
  Age: 50 Year
  Sex: Female
  Weight: 70.3 kg

DRUGS (3)
  1. GILENYA [Suspect]
     Indication: MULTIPLE SCLEROSIS
     Route: 048
     Dates: start: 20120301
  2. BACLOFEN (BACLOFEN) [Concomitant]
  3. DESOXYN (METAMFETAMINE HYDROCHLORIDE) [Concomitant]

REACTIONS (1)
  - Eye irritation [None]
